FAERS Safety Report 5807254-5 (Version None)
Quarter: 2008Q3

REPORT INFORMATION
  Report Type: 
  Country: None (occurrence: None)
  Receive Date: 20080711
  Receipt Date: 20080708
  Transmission Date: 20090109
  Serious: Yes (Hospitalization)
  Sender: FDA-Public Use
  Company Number: US-BRISTOL-MYERS SQUIBB COMPANY-14209928

PATIENT
  Age: 83 Year
  Sex: Female

DRUGS (13)
  1. IXEMPRA KIT [Suspect]
     Indication: BREAST CANCER METASTATIC
     Dosage: DOSE - 40MG/M2 = 60MG
     Route: 040
     Dates: start: 20080519, end: 20080519
  2. RADIATION THERAPY [Suspect]
     Dates: start: 20070515, end: 20070620
  3. ZOMETA [Concomitant]
     Dates: start: 20080519
  4. FASLODEX [Concomitant]
     Dates: start: 20080519
  5. NEULASTA [Concomitant]
     Dates: start: 20080520
  6. LASIX [Concomitant]
  7. LETROZOLE [Concomitant]
  8. MEGACE [Concomitant]
  9. MULTI-VITAMIN [Concomitant]
  10. OMEPRAZOLE [Concomitant]
  11. POTASSIUM CHLORIDE [Concomitant]
  12. DARVOCET-N 100 [Concomitant]
  13. VITAMIN B6 [Concomitant]

REACTIONS (4)
  - HAEMOPTYSIS [None]
  - MUCOSAL INFLAMMATION [None]
  - PLATELET COUNT DECREASED [None]
  - STOMATITIS [None]
